FAERS Safety Report 18632988 (Version 1)
Quarter: 2020Q4

REPORT INFORMATION
  Report Type: Spontaneous
  Country: US (occurrence: US)
  Receive Date: 20201217
  Receipt Date: 20201217
  Transmission Date: 20210114
  Serious: Yes (Death)
  Sender: FDA-Public Use
  Company Number: None

PATIENT
  Age: 65 Year
  Sex: Female

DRUGS (11)
  1. MYCOPHENOLIC ACID DR 360 MG [Suspect]
     Active Substance: MYCOPHENOLIC ACID
     Indication: RENAL TRANSPLANT
     Route: 048
     Dates: start: 20200723, end: 20201205
  2. ALLOPURINOL. [Concomitant]
     Active Substance: ALLOPURINOL
  3. NOVOLOG [Concomitant]
     Active Substance: INSULIN ASPART
  4. SULFAMETH/TRIMETHOPRIM [Concomitant]
     Active Substance: SULFAMETHOXAZOLE\TRIMETHOPRIM
  5. TACROLIMUS, 1 MG [Suspect]
     Active Substance: TACROLIMUS
     Indication: RENAL TRANSPLANT
     Route: 048
     Dates: start: 20200723, end: 20201205
  6. PREDNISONE. [Concomitant]
     Active Substance: PREDNISONE
  7. BUMETANIDE. [Concomitant]
     Active Substance: BUMETANIDE
  8. CARVEDILOL. [Concomitant]
     Active Substance: CARVEDILOL
  9. LEVEMIR FLEXTOUCH PEN [Concomitant]
  10. PRAVASTATIN. [Concomitant]
     Active Substance: PRAVASTATIN
  11. SERTRALINE [Concomitant]
     Active Substance: SERTRALINE HYDROCHLORIDE

REACTIONS (1)
  - Death [None]

NARRATIVE: CASE EVENT DATE: 20201205
